FAERS Safety Report 15170814 (Version 1)
Quarter: 2018Q3

REPORT INFORMATION
  Report Type: Spontaneous
  Country: US (occurrence: US)
  Receive Date: 20180622
  Receipt Date: 20180622
  Transmission Date: 20181010
  Serious: No
  Sender: FDA-Public Use
  Company Number: None

PATIENT
  Age: 48 Year
  Sex: Female

DRUGS (1)
  1. NEULASTA [Suspect]
     Active Substance: PEGFILGRASTIM
     Indication: BREAST CANCER
     Dosage: ?          OTHER ROUTE:INJECTION ONE SYRINGE (6MG) ONCE GIVEN 24 HRS?

REACTIONS (2)
  - Bone pain [None]
  - Headache [None]

NARRATIVE: CASE EVENT DATE: 20180607
